FAERS Safety Report 4712065-8 (Version None)
Quarter: 2005Q2

REPORT INFORMATION
  Report Type: 
  Country: None (occurrence: None)
  Receive Date: 20050629
  Receipt Date: 20050411
  Transmission Date: 20051028
  Serious: No
  Sender: FDA-Public Use
  Company Number: 05P-163-0296949-00

PATIENT
  Age: 46 Year
  Sex: Female
  Weight: 105 kg

DRUGS (9)
  1. HUMIRA [Suspect]
     Indication: RHEUMATOID ARTHRITIS
     Dosage: 40 MG, 1 IN 2 WK, SUBCUTANEOUS
     Route: 058
     Dates: start: 20040401
  2. OXAPROZIN [Concomitant]
  3. PREDNISONE [Concomitant]
  4. PAROXETINE HYDROCHLORIDE [Concomitant]
  5. FOLIC ACID [Concomitant]
  6. METHOTREXATE [Concomitant]
  7. OMEPRAZOLE [Concomitant]
  8. VICODIN [Concomitant]
  9. FUROSEMIDE [Concomitant]

REACTIONS (3)
  - FIBROCYSTIC BREAST DISEASE [None]
  - GLOSSODYNIA [None]
  - LEUKOPLAKIA ORAL [None]
